FAERS Safety Report 19704743 (Version 2)
Quarter: 2021Q3

REPORT INFORMATION
  Report Type: Spontaneous
  Country: US (occurrence: US)
  Receive Date: 20210816
  Receipt Date: 20210906
  Transmission Date: 20211014
  Serious: Yes (Death, Other)
  Sender: FDA-Public Use
  Company Number: US-PFIZER INC-202100997818

PATIENT
  Age: 55 Year
  Sex: Female

DRUGS (1)
  1. IBRANCE [Suspect]
     Active Substance: PALBOCICLIB
     Dosage: 75 MG
     Dates: start: 20210723, end: 20210823

REACTIONS (10)
  - Alopecia [Unknown]
  - Decreased appetite [Unknown]
  - Death [Fatal]
  - Blood potassium decreased [Unknown]
  - Stomatitis [Unknown]
  - Rash [Unknown]
  - Nausea [Unknown]
  - Influenza like illness [Unknown]
  - Somnolence [Unknown]
  - Tremor [Unknown]

NARRATIVE: CASE EVENT DATE: 2021
